FAERS Safety Report 10420963 (Version 1)
Quarter: 2014Q3

REPORT INFORMATION
  Report Type: Spontaneous
  Country: US (occurrence: None)
  Receive Date: 20140714
  Receipt Date: 20140714
  Transmission Date: 20150326
  Serious: Yes (Other)
  Sender: FDA-Public Use
  Company Number: 2014US003124

PATIENT
  Age: 77 Year
  Sex: Female

DRUGS (7)
  1. SOTALOL (SOTALOL HYDROCHLORIDE) [Concomitant]
  2. LISINOPRIL. [Concomitant]
     Active Substance: LISINOPRIL
  3. AMLODIPINE (AMLODIPINE BESILATE) [Concomitant]
  4. ICLUSIG [Suspect]
     Active Substance: PONATINIB
     Indication: CHRONIC MYELOID LEUKAEMIA
     Route: 048
     Dates: start: 20140207
  5. VALTREX (VALACYCLOVIR HYDROCHLORIDE) [Concomitant]
  6. ZOLPIDEM TARTRATE. [Concomitant]
     Active Substance: ZOLPIDEM TARTRATE
  7. CLONIDINE (CLONIDINE HYDROCHLORIDE) [Concomitant]

REACTIONS (2)
  - Hypertension [None]
  - Headache [None]

NARRATIVE: CASE EVENT DATE: 20140321
